FAERS Safety Report 8100360-4 (Version None)
Quarter: 2012Q1

REPORT INFORMATION
  Report Type: 
  Country: None (occurrence: None)
  Receive Date: 20120129
  Receipt Date: 20111128
  Transmission Date: 20120608
  Serious: No
  Sender: FDA-Public Use
  Company Number: US-ABBOTT-11P-163-0878019-00

PATIENT
  Age: 57 Year
  Sex: Female

DRUGS (1)
  1. HUMIRA [Suspect]
     Indication: RHEUMATOID ARTHRITIS
     Dates: start: 20111116

REACTIONS (6)
  - INJECTION SITE RASH [None]
  - INJECTION SITE SWELLING [None]
  - ERYTHEMA [None]
  - INJECTION SITE ERYTHEMA [None]
  - RASH [None]
  - SWELLING [None]
